FAERS Safety Report 10960993 (Version 1)
Quarter: 2015Q1

REPORT INFORMATION
  Report Type: Spontaneous
  Country: US (occurrence: None)
  Receive Date: 20150326
  Receipt Date: 20150326
  Transmission Date: 20150721
  Serious: Yes (Disabling, Other)
  Sender: FDA-Public Use
  Company Number: None

PATIENT
  Age: 41 Year
  Sex: Male
  Weight: 95.26 kg

DRUGS (13)
  1. OXYCODONE [Concomitant]
     Active Substance: OXYCODONE
  2. PROMETHAZINE [Concomitant]
     Active Substance: PROMETHAZINE\PROMETHAZINE HYDROCHLORIDE
  3. LYRICA [Concomitant]
     Active Substance: PREGABALIN
  4. SKELACIN [Concomitant]
  5. SUBOXONE [Suspect]
     Active Substance: BUPRENORPHINE HYDROCHLORIDE\NALOXONE HYDROCHLORIDE
     Indication: DISABILITY
  6. LACTULOSE. [Concomitant]
     Active Substance: LACTULOSE
  7. MULTIVITAMINS [Concomitant]
     Active Substance: VITAMINS
  8. VITAMIN D [Concomitant]
     Active Substance: CHOLECALCIFEROL
  9. ZINC [Concomitant]
     Active Substance: ZINC\ZINC CHLORIDE
  10. OXYCONTIN [Suspect]
     Active Substance: OXYCODONE HYDROCHLORIDE
  11. GABAPENTIN. [Concomitant]
     Active Substance: GABAPENTIN
  12. VIOXX [Concomitant]
     Active Substance: ROFECOXIB
  13. FISH OIL [Concomitant]
     Active Substance: FISH OIL

REACTIONS (3)
  - Psychotic disorder [None]
  - Breast neoplasm [None]
  - Retrograde ejaculation [None]
